FAERS Safety Report 4416525-9 (Version None)
Quarter: 2004Q2

REPORT INFORMATION
  Report Type: 
  Country: None (occurrence: None)
  Receive Date: 20040630
  Receipt Date: 20040528
  Transmission Date: 20050107
  Serious: Yes (Hospitalization)
  Sender: FDA-Public Use
  Company Number: 04P-163-0251405-00

PATIENT
  Age: 65 Year
  Sex: Female

DRUGS (1)
  1. HUMIRA [Suspect]
     Dosage: 40 MG, SUBCUTANEOUS
     Route: 058
     Dates: end: 20031219

REACTIONS (2)
  - HEART RATE INCREASED [None]
  - INFLUENZA [None]
